FAERS Safety Report 12537746 (Version 1)
Quarter: 2016Q3

REPORT INFORMATION
  Report Type: Spontaneous
  Country: US (occurrence: US)
  Receive Date: 20160707
  Receipt Date: 20160707
  Transmission Date: 20161109
  Serious: No
  Sender: FDA-Public Use
  Company Number: US-MALLINCKRODT-T201601328

PATIENT
  Age: 50 Year
  Sex: Female

DRUGS (2)
  1. ULTRATAG RBC [Suspect]
     Active Substance: STANNOUS CHLORIDE
     Indication: MULTIPLE GATED ACQUISITION SCAN
     Dosage: UNK
     Route: 065
     Dates: start: 201601
  2. ULTRA-TECHNEKOW DTE [Suspect]
     Active Substance: TECHNETIUM TC-99M SODIUM PERTECHNETATE
     Indication: MULTIPLE GATED ACQUISITION SCAN
     Dosage: UNK
     Route: 065
     Dates: start: 201601

REACTIONS (2)
  - Lip swelling [Recovered/Resolved]
  - Paraesthesia [Recovered/Resolved]

NARRATIVE: CASE EVENT DATE: 201601
